FAERS Safety Report 18911760 (Version 1)
Quarter: 2021Q1

REPORT INFORMATION
  Report Type: Spontaneous
  Country: US (occurrence: US)
  Receive Date: 20210218
  Receipt Date: 20210218
  Transmission Date: 20210420
  Serious: No
  Sender: FDA-Public Use
  Company Number: US-TAKEDA-2021TUS008084

PATIENT
  Sex: Female
  Weight: 61.22 kg

DRUGS (17)
  1. FLONASE [MOMETASONE FUROATE] [Concomitant]
     Active Substance: MOMETASONE FUROATE
  2. CALCITRIOL. [Concomitant]
     Active Substance: CALCITRIOL
  3. ACYCLOVIR [ACICLOVIR] [Concomitant]
     Active Substance: ACYCLOVIR
  4. GAMMAGARD LIQUID [Suspect]
     Active Substance: HUMAN IMMUNOGLOBULIN G
     Indication: IMMUNODEFICIENCY COMMON VARIABLE
     Dosage: UNK
     Route: 065
  5. ASPIRIN [ACETYLSALICYLIC ACID] [Concomitant]
     Active Substance: ASPIRIN
  6. KLOR?CON [Concomitant]
     Active Substance: POTASSIUM CHLORIDE
  7. PROTONIX [OMEPRAZOLE] [Concomitant]
     Active Substance: OMEPRAZOLE
  8. HCTZ [Concomitant]
     Active Substance: HYDROCHLOROTHIAZIDE
  9. ONDANSETRON [Concomitant]
     Active Substance: ONDANSETRON
  10. OLOPATADINE. [Concomitant]
     Active Substance: OLOPATADINE
  11. ALDACTONE [Concomitant]
     Active Substance: SPIRONOLACTONE
  12. TOPAMAX [Concomitant]
     Active Substance: TOPIRAMATE
  13. SYNTHROID [Concomitant]
     Active Substance: LEVOTHYROXINE SODIUM
  14. MELATONIN [Concomitant]
     Active Substance: MELATONIN
  15. ZANAFLEX [Concomitant]
     Active Substance: TIZANIDINE HYDROCHLORIDE
  16. EFFEXOR XR [Concomitant]
     Active Substance: VENLAFAXINE HYDROCHLORIDE
  17. VITAMIN B12 [Concomitant]
     Active Substance: CYANOCOBALAMIN

REACTIONS (2)
  - Illness [Unknown]
  - Product dose omission issue [Unknown]
